FAERS Safety Report 22351515 (Version 1)
Quarter: 2023Q2

REPORT INFORMATION
  Report Type: Spontaneous
  Country: GR (occurrence: GR)
  Receive Date: 20230522
  Receipt Date: 20230522
  Transmission Date: 20230721
  Serious: Yes (Death, Other)
  Sender: FDA-Public Use
  Company Number: GR-MYLANLABS-2023M1052490

PATIENT
  Age: 81 Year
  Sex: Male

DRUGS (10)
  1. AZACITIDINE [Suspect]
     Active Substance: AZACITIDINE
     Indication: Myelodysplastic syndrome with ringed sideroblasts
     Dosage: UNK, CYCLE (8 CYCLES)
     Route: 065
  2. AZACITIDINE [Suspect]
     Active Substance: AZACITIDINE
     Indication: Myelodysplastic syndrome with multilineage dysplasia
  3. AZACITIDINE [Suspect]
     Active Substance: AZACITIDINE
     Indication: Acute myeloid leukaemia
  4. VENETOCLAX [Suspect]
     Active Substance: VENETOCLAX
     Indication: Myelodysplastic syndrome with ringed sideroblasts
     Dosage: UNK, CYCLE (8 CYCLES)
     Route: 065
  5. VENETOCLAX [Suspect]
     Active Substance: VENETOCLAX
     Indication: Myelodysplastic syndrome with multilineage dysplasia
  6. VENETOCLAX [Suspect]
     Active Substance: VENETOCLAX
     Indication: Acute myeloid leukaemia
  7. ERYTHROPOIETIN [Concomitant]
     Active Substance: ERYTHROPOIETIN
     Indication: Myelodysplastic syndrome with ringed sideroblasts
     Dosage: UNK
     Route: 065
  8. ERYTHROPOIETIN [Concomitant]
     Active Substance: ERYTHROPOIETIN
     Indication: Myelodysplastic syndrome with multilineage dysplasia
  9. LUSPATERCEPT [Concomitant]
     Active Substance: LUSPATERCEPT
     Indication: Myelodysplastic syndrome with ringed sideroblasts
     Dosage: UNK
     Route: 065
  10. LUSPATERCEPT [Concomitant]
     Active Substance: LUSPATERCEPT
     Indication: Myelodysplastic syndrome with multilineage dysplasia

REACTIONS (2)
  - Drug ineffective [Fatal]
  - Disease progression [Unknown]
